FAERS Safety Report 8919215 (Version 3)
Quarter: 2012Q4

REPORT INFORMATION
  Report Type: 
  Country: FR (occurrence: JP)
  Receive Date: 20121121
  Receipt Date: 20121207
  Transmission Date: 20130627
  Serious: Yes (Hospitalization)
  Sender: FDA-Public Use
  Company Number: JP-FRI-1000040398

PATIENT
  Age: 61 Year
  Sex: Female
  Weight: 68 kg

DRUGS (2)
  1. MILNACIPRAN [Suspect]
     Dosage: 800 mg
     Route: 048
  2. ETIZOLAM [Concomitant]

REACTIONS (4)
  - Suicide attempt [Unknown]
  - Intentional overdose [Unknown]
  - Ventricular extrasystoles [Unknown]
  - Tachycardia [Unknown]
